FAERS Safety Report 23484885 (Version 4)
Quarter: 2024Q3

REPORT INFORMATION
  Report Type: Spontaneous
  Country: US (occurrence: US)
  Receive Date: 20240206
  Receipt Date: 20240802
  Transmission Date: 20241017
  Serious: Yes (Hospitalization, Other)
  Sender: BRISTOL MYERS SQUIBB
  Company Number: US-BRISTOL-MYERS SQUIBB COMPANY-2024-018849

PATIENT
  Age: 81 Year
  Sex: Female

DRUGS (2)
  1. REVLIMID [Suspect]
     Active Substance: LENALIDOMIDE
     Indication: Plasma cell myeloma
     Dosage: QD FOR 21 DAYS ON THEN 7 DAYS OFF
     Route: 048
     Dates: end: 202402
  2. REVLIMID [Suspect]
     Active Substance: LENALIDOMIDE
     Indication: Monoclonal gammopathy

REACTIONS (6)
  - Diarrhoea [Unknown]
  - COVID-19 [Unknown]
  - Malignant polyp [Unknown]
  - Colon cancer [Unknown]
  - Staphylococcal infection [Unknown]
  - Animal scratch [Unknown]

NARRATIVE: CASE EVENT DATE: 20240101
